FAERS Safety Report 10979348 (Version 3)
Quarter: 2015Q3

REPORT INFORMATION
  Report Type: Spontaneous
  Country: DE (occurrence: DE)
  Receive Date: 20150402
  Receipt Date: 20150716
  Transmission Date: 20151125
  Serious: Yes (Other)
  Sender: FDA-Public Use
  Company Number: DE-PFIZER INC-2015112064

PATIENT
  Age: 4 Year
  Sex: Female

DRUGS (13)
  1. PHENYTOIN. [Suspect]
     Active Substance: PHENYTOIN
     Dosage: 400 MG, DAILY
  2. FUROSEMIDE. [Concomitant]
     Active Substance: FUROSEMIDE
     Indication: EPILEPSY
  3. CLONAZEPAM. [Suspect]
     Active Substance: CLONAZEPAM
     Indication: EPILEPSY
  4. PHENOBARBITAL. [Concomitant]
     Active Substance: PHENOBARBITAL
     Indication: EPILEPSY
  5. CARBAMAZEPINE. [Suspect]
     Active Substance: CARBAMAZEPINE
     Indication: EPILEPSY
  6. PRIMIDONE. [Suspect]
     Active Substance: PRIMIDONE
     Indication: EPILEPSY
  7. PHENYTOIN. [Suspect]
     Active Substance: PHENYTOIN
     Indication: EPILEPSY
     Dosage: 150 MG, DAILY
     Dates: start: 1968
  8. SULTHIAME [Suspect]
     Active Substance: SULTHIAME
     Indication: EPILEPSY
  9. ACETAZOLAMIDE. [Concomitant]
     Active Substance: ACETAZOLAMIDE
     Indication: EPILEPSY
  10. DEXAMETHASONE. [Concomitant]
     Active Substance: DEXAMETHASONE
     Indication: EPILEPSY
  11. PHENYTOIN. [Suspect]
     Active Substance: PHENYTOIN
     Dosage: 200 MG, DAILY
     Dates: start: 1978
  12. PHENYTOIN. [Suspect]
     Active Substance: PHENYTOIN
     Dosage: 245 MG, DAILY
  13. PHENETURIDE [Concomitant]
     Active Substance: PHENETURIDE
     Indication: EPILEPSY

REACTIONS (5)
  - Ataxia [Recovering/Resolving]
  - Drug effect incomplete [Unknown]
  - Toxicity to various agents [Unknown]
  - Anticonvulsant drug level above therapeutic [Unknown]
  - Cerebellar atrophy [Unknown]

NARRATIVE: CASE EVENT DATE: 1968
